FAERS Safety Report 18381779 (Version 1)
Quarter: 2020Q4

REPORT INFORMATION
  Report Type: Spontaneous
  Country: US (occurrence: US)
  Receive Date: 20201013
  Receipt Date: 20201013
  Transmission Date: 20210114
  Serious: Yes (Hospitalization, Other)
  Sender: FDA-Public Use
  Company Number: None

PATIENT
  Age: 72 Year
  Sex: Female

DRUGS (10)
  1. SYMBICORT 160/4.5 MCG [Concomitant]
     Dates: start: 20201005
  2. AMLODIPINE [Concomitant]
     Active Substance: AMLODIPINE BESYLATE
  3. ELIQUIS [Concomitant]
     Active Substance: APIXABAN
     Dates: start: 20201005
  4. ALBUTEROL 90 MCG HFA [Concomitant]
     Dates: start: 20201005
  5. GLIPIZDE 10 MG [Concomitant]
  6. LEVEMIR [Concomitant]
     Active Substance: INSULIN DETEMIR
  7. IBRANCE [Suspect]
     Active Substance: PALBOCICLIB
     Indication: BREAST CANCER
     Dosage: ?          OTHER FREQUENCY:DAILY X21 ON,7 OFF;?
     Route: 048
     Dates: start: 20190619, end: 20200918
  8. FUROSEMIDE 40 MG [Concomitant]
     Active Substance: FUROSEMIDE
  9. METOPROLOL TARTRATE 50 MG [Concomitant]
     Active Substance: METOPROLOL TARTRATE
  10. ATORVASTATIN 10 MG [Concomitant]
     Active Substance: ATORVASTATIN

REACTIONS (4)
  - Pulmonary toxicity [None]
  - Cardiac failure congestive [None]
  - Cerebrovascular accident [None]
  - Chronic obstructive pulmonary disease [None]

NARRATIVE: CASE EVENT DATE: 20201005
